FAERS Safety Report 25215158 (Version 2)
Quarter: 2025Q2

REPORT INFORMATION
  Report Type: Spontaneous
  Country: US (occurrence: US)
  Receive Date: 20250418
  Receipt Date: 20250423
  Transmission Date: 20250716
  Serious: No
  Sender: SANDOZ
  Company Number: US-SANDOZ-SDZ2025US022822

PATIENT
  Sex: Female

DRUGS (3)
  1. DOTTI [Suspect]
     Active Substance: ESTRADIOL
     Indication: Product used for unknown indication
     Route: 065
  2. ESTRADIOL [Suspect]
     Active Substance: ESTRADIOL
     Indication: Product used for unknown indication
     Route: 065
  3. VIVELLE-DOT [Suspect]
     Active Substance: ESTRADIOL
     Indication: Product used for unknown indication
     Route: 065

REACTIONS (9)
  - Hot flush [Recovered/Resolved]
  - Brain fog [Recovered/Resolved]
  - General physical health deterioration [Unknown]
  - Headache [Recovered/Resolved]
  - Nausea [Recovered/Resolved]
  - Haemorrhage [Recovered/Resolved]
  - Wrong technique in product usage process [Unknown]
  - Product substitution issue [Unknown]
  - Product availability issue [Unknown]
